FAERS Safety Report 6260974-3 (Version None)
Quarter: 2009Q3

REPORT INFORMATION
  Report Type: 
  Country: None (occurrence: None)
  Receive Date: 20090709
  Receipt Date: 20090625
  Transmission Date: 20100115
  Serious: Yes (Hospitalization)
  Sender: FDA-Public Use
  Company Number: CA-RANBAXY-2009RR-25252

PATIENT
  Age: 81 Year
  Sex: Male

DRUGS (8)
  1. CLARITHROMYCIN [Suspect]
     Dosage: 500 MG, BID
  2. DURAGESIC-100 [Suspect]
     Dosage: 200 UG/H
  3. ALBUTEROL [Concomitant]
     Route: 055
  4. IPRATROPIUM BROMIDE [Concomitant]
  5. PREDNISONE [Concomitant]
     Route: 048
  6. LEVOFLOXACIN [Concomitant]
  7. VANCOMYCIN [Concomitant]
     Dosage: UNK
     Route: 042
  8. METRONIDAZOLE [Concomitant]
     Dosage: 250 MG, QID

REACTIONS (2)
  - DRUG INTERACTION [None]
  - RESPIRATORY FAILURE [None]
